FAERS Safety Report 6870981-5 (Version None)
Quarter: 2010Q3

REPORT INFORMATION
  Report Type: 
  Country: None (occurrence: None)
  Receive Date: 20100723
  Receipt Date: 20100715
  Transmission Date: 20110219
  Serious: Yes (Life-Threatening, Hospitalization)
  Sender: FDA-Public Use
  Company Number: JP-AMGEN-QUU416082

PATIENT
  Sex: Female
  Weight: 33 kg

DRUGS (14)
  1. ENBREL [Suspect]
     Indication: RHEUMATOID ARTHRITIS
     Dosage: 25 MG ONCE WEEKLY; LYOPHILIZED
     Route: 058
     Dates: start: 20070125, end: 20090220
  2. ENBREL [Suspect]
     Dosage: 25 MG ONCE WEEKLY; SOLUTION FOR INJECTION
     Route: 058
     Dates: start: 20090611
  3. PROGRAF [Concomitant]
     Indication: RHEUMATOID ARTHRITIS
     Route: 048
     Dates: start: 20061127, end: 20081204
  4. RHEUMATREX [Concomitant]
     Indication: RHEUMATOID ARTHRITIS
     Route: 048
     Dates: start: 20010101, end: 20010101
  5. RHEUMATREX [Concomitant]
     Route: 048
     Dates: start: 20010101
  6. MEDROL [Concomitant]
     Indication: RHEUMATOID ARTHRITIS
     Route: 048
     Dates: start: 19920101
  7. SULFASALAZINE [Concomitant]
     Dosage: UNSPECIFIED
     Dates: start: 19980101
  8. SELBEX [Concomitant]
     Route: 048
     Dates: start: 19920101
  9. NORVASC [Concomitant]
     Indication: HYPERTENSION
     Route: 048
     Dates: start: 19920101
  10. JUVELA [Concomitant]
     Route: 048
     Dates: start: 19920101
  11. METHYCOBAL [Concomitant]
     Indication: NEUROPATHY PERIPHERAL
     Route: 048
     Dates: start: 19920101
  12. MAGNESIUM OXIDE [Concomitant]
     Indication: CONSTIPATION
     Dosage: 0.99/DAY
     Route: 048
     Dates: start: 19920101
  13. PREDONINE [Concomitant]
     Dosage: UNKNOWN
     Route: 048
  14. LOXONIN [Concomitant]
     Indication: RHEUMATOID ARTHRITIS
     Route: 048
     Dates: start: 19920101

REACTIONS (2)
  - FEMUR FRACTURE [None]
  - PNEUMOCYSTIS JIROVECI PNEUMONIA [None]
